FAERS Safety Report 14974272 (Version 2)
Quarter: 2018Q3

REPORT INFORMATION
  Report Type: Spontaneous
  Country: IN (occurrence: IN)
  Receive Date: 20180605
  Receipt Date: 20180905
  Transmission Date: 20181010
  Serious: Yes (Death, Life-Threatening, Other)
  Sender: FDA-Public Use
  Company Number: IN-SA-2018SA146843

PATIENT
  Sex: Male
  Weight: .5 kg

DRUGS (3)
  1. GENTAMICIN SULFATE. [Suspect]
     Active Substance: GENTAMICIN SULFATE
     Indication: SEPSIS NEONATAL
     Dosage: INJECTABLE
  2. DEXAMETHASONE SALT NOT SPECIFIED [Suspect]
     Active Substance: DEXAMETHASONE
     Indication: RESPIRATORY DISTRESS
     Dosage: UNK,
  3. CEFOTAXIME SODIUM [Suspect]
     Active Substance: CEFOTAXIME SODIUM
     Indication: SEPSIS NEONATAL
     Dosage: INJECTABLE

REACTIONS (6)
  - Scab [Fatal]
  - Mucormycosis [Fatal]
  - Dermatitis bullous [Fatal]
  - Pyrexia [Fatal]
  - Rash pustular [Fatal]
  - Ulcer [Fatal]
